FAERS Safety Report 8667481 (Version 2)
Quarter: 2013Q4

REPORT INFORMATION
  Report Type: Spontaneous
  Country: US (occurrence: US)
  Receive Date: 20120717
  Receipt Date: 20131101
  Transmission Date: 20140711
  Serious: No
  Sender: FDA-Public Use
  Company Number: US-009507513-2012SP027213

PATIENT
  Sex: Male

DRUGS (4)
  1. NITRO-DUR [Suspect]
     Indication: ANGINA PECTORIS
     Dosage: 0.8 MG, Q12H
     Route: 062
     Dates: start: 2002
  2. ATENOLOL [Concomitant]
  3. ZOCOR [Concomitant]
  4. DICLOFENAC [Concomitant]

REACTIONS (1)
  - Therapeutic product ineffective [Recovered/Resolved]
